FAERS Safety Report 4446204-3 (Version None)
Quarter: 2004Q3

REPORT INFORMATION
  Report Type: 
  Country: None (occurrence: None)
  Receive Date: 20040907
  Receipt Date: 20040724
  Transmission Date: 20050211
  Serious: No
  Sender: FDA-Public Use
  Company Number: MC200400459

PATIENT

DRUGS (2)
  1. ANGIOMAX [Suspect]
  2. REOPRO [Concomitant]

REACTIONS (2)
  - CARDIAC TAMPONADE [None]
  - DIZZINESS [None]
